FAERS Safety Report 5465011-6 (Version None)
Quarter: 2007Q3

REPORT INFORMATION
  Report Type: 
  Country: None (occurrence: None)
  Receive Date: 20070820
  Receipt Date: 20070503
  Transmission Date: 20080115
  Serious: No
  Sender: FDA-Public Use
  Company Number: TPA2007A00988

PATIENT
  Age: 71 Year
  Sex: Female
  Weight: 67.586 kg

DRUGS (4)
  1. ROZEREM [Suspect]
     Indication: INSOMNIA
     Dosage: 8 MG, QHS, PER ORAL
     Route: 048
     Dates: start: 20070421, end: 20070430
  2. LIPITOR [Concomitant]
  3. SPIRONOLACTONE [Concomitant]
  4. BENADRYL (SODIUM CITRATE, MENTHOL, DIPHENHYDRAMINE HYDROCHLORIDE, AMMO [Concomitant]

REACTIONS (2)
  - DRUG INEFFECTIVE [None]
  - MIDDLE INSOMNIA [None]
